FAERS Safety Report 9901718 (Version 1)
Quarter: 2014Q1

REPORT INFORMATION
  Report Type: Spontaneous
  Country: IT (occurrence: IT)
  Receive Date: 20140217
  Receipt Date: 20140217
  Transmission Date: 20141002
  Serious: Yes (Other)
  Sender: FDA-Public Use
  Company Number: PHHY2014IT018348

PATIENT
  Sex: Female

DRUGS (6)
  1. CICLOSPORIN [Suspect]
     Indication: PROPHYLAXIS AGAINST GRAFT VERSUS HOST DISEASE
  2. METHYLPREDNISOLONE [Suspect]
     Indication: PROPHYLAXIS AGAINST GRAFT VERSUS HOST DISEASE
  3. IMMUNOGLOBULIN I.V [Suspect]
     Dosage: 800 MG/KGX1
  4. FLUDARABINE [Concomitant]
  5. CYCLOPHOSPHAMIDE [Concomitant]
  6. ANTITHYMOCYTE IMMUNOGLOBULIN [Concomitant]

REACTIONS (5)
  - Autoimmune haemolytic anaemia [Unknown]
  - Acute graft versus host disease [Unknown]
  - Chronic graft versus host disease [Unknown]
  - Cytomegalovirus infection [Unknown]
  - Drug ineffective [Unknown]
